FAERS Safety Report 17088341 (Version 1)
Quarter: 2019Q4

REPORT INFORMATION
  Report Type: Spontaneous
  Country: US (occurrence: US)
  Receive Date: 20191128
  Receipt Date: 20191128
  Transmission Date: 20200122
  Serious: No
  Sender: FDA-Public Use
  Company Number: US-APOTEX-2019AP007684

PATIENT
  Sex: Female

DRUGS (1)
  1. NICOTINE. [Suspect]
     Active Substance: NICOTINE
     Indication: SMOKING CESSATION THERAPY
     Dosage: 14 MG, QD
     Route: 062

REACTIONS (7)
  - Muscle spasms [Not Recovered/Not Resolved]
  - Hunger [Unknown]
  - Muscle spasms [Unknown]
  - Dizziness [Unknown]
  - Abnormal dreams [Unknown]
  - Nocturia [Not Recovered/Not Resolved]
  - Somnolence [Unknown]
